FAERS Safety Report 22309241 (Version 2)
Quarter: 2023Q2

REPORT INFORMATION
  Report Type: Spontaneous
  Country: CN (occurrence: CN)
  Receive Date: 20230511
  Receipt Date: 20230613
  Transmission Date: 20230721
  Serious: Yes (Hospitalization, Disabling, Other)
  Sender: FDA-Public Use
  Company Number: CN-002147023-NVSC2023CN092903

PATIENT
  Age: 70 Year
  Sex: Female

DRUGS (1)
  1. ACLASTA [Suspect]
     Active Substance: ZOLEDRONIC ACID
     Indication: Osteoporosis
     Dosage: 5 MG, Q12MO
     Route: 042
     Dates: start: 20230406, end: 20230406

REACTIONS (25)
  - Pyrexia [Recovered/Resolved]
  - Myalgia [Unknown]
  - Arthralgia [Recovering/Resolving]
  - Intestinal obstruction [Unknown]
  - Abdominal pain [Unknown]
  - Abdominal pain upper [Unknown]
  - Eating disorder [Unknown]
  - Vomiting [Unknown]
  - Insomnia [Unknown]
  - Abdominal mass [Unknown]
  - Postmenopausal haemorrhage [Unknown]
  - Hyperpyrexia [Unknown]
  - Blood glucose increased [Unknown]
  - Muscular weakness [Unknown]
  - Coronavirus infection [Unknown]
  - Asthenia [Unknown]
  - Feeling cold [Unknown]
  - Discomfort [Unknown]
  - Weight decreased [Unknown]
  - Gait disturbance [Unknown]
  - Faeces soft [Unknown]
  - Nausea [Unknown]
  - Adverse reaction [Unknown]
  - Malaise [Unknown]
  - Chronic gastritis [Unknown]

NARRATIVE: CASE EVENT DATE: 20230407
